FAERS Safety Report 6328413-1 (Version None)
Quarter: 2009Q3

REPORT INFORMATION
  Report Type: 
  Country: None (occurrence: None)
  Receive Date: 20090825
  Receipt Date: 20090324
  Transmission Date: 20100115
  Serious: No
  Sender: FDA-Public Use
  Company Number: US-ABBOTT-09P-163-0564555-00

PATIENT
  Sex: Female
  Weight: 89.892 kg

DRUGS (4)
  1. SYNTHROID [Suspect]
     Indication: HYPOTHYROIDISM
     Route: 048
     Dates: start: 20070801
  2. FLONASE [Concomitant]
     Indication: SEASONAL ALLERGY
     Route: 045
  3. UNNAMED INHALERS [Concomitant]
     Indication: ASTHMA
     Route: 055
  4. CLARITIN [Concomitant]
     Indication: SEASONAL ALLERGY

REACTIONS (1)
  - COELIAC DISEASE [None]
